FAERS Safety Report 8557589 (Version 2)
Quarter: 2013Q3

REPORT INFORMATION
  Report Type: Spontaneous
  Country: US (occurrence: US)
  Receive Date: 20120511
  Receipt Date: 20130718
  Transmission Date: 20140515
  Serious: Yes (Hospitalization, Other)
  Sender: FDA-Public Use
  Company Number: US-AMGEN-USASP2012028215

PATIENT
  Age: 63 Year
  Sex: Female

DRUGS (2)
  1. ENBREL [Suspect]
     Indication: RHEUMATOID ARTHRITIS
     Dosage: 50 MG, QWK
     Route: 058
     Dates: start: 200807
  2. ENBREL [Suspect]
     Indication: PSORIASIS

REACTIONS (4)
  - Cerebrovascular accident [Unknown]
  - Thrombosis [Unknown]
  - Transient ischaemic attack [Unknown]
  - Aneurysm [Unknown]
